FAERS Safety Report 7761377-2 (Version None)
Quarter: 2011Q3

REPORT INFORMATION
  Report Type: 
  Country: None (occurrence: None)
  Receive Date: 20110920
  Receipt Date: 20110915
  Transmission Date: 20111222
  Serious: No
  Sender: FDA-Public Use
  Company Number: US-PFIZER INC-2011219058

PATIENT
  Sex: Male
  Weight: 77 kg

DRUGS (1)
  1. SULFASALAZINE [Suspect]
     Indication: ARTHRITIS
     Dosage: 1000 MG, 2X/DAY
     Route: 048

REACTIONS (1)
  - DRUG INEFFECTIVE [None]
